FAERS Safety Report 9920160 (Version 1)
Quarter: 2014Q1

REPORT INFORMATION
  Report Type: Report from Study
  Country: US (occurrence: US)
  Receive Date: 20140224
  Receipt Date: 20140224
  Transmission Date: 20141002
  Serious: Yes (Hospitalization)
  Sender: FDA-Public Use
  Company Number: PHEH2014US003574

PATIENT
  Age: 49 Year
  Sex: Male

DRUGS (2)
  1. DIOVAN [Suspect]
     Dosage: UNK UKN, UNK
     Dates: end: 2013
  2. DIOVAN [Suspect]
     Dosage: UNK UKN, UNK

REACTIONS (2)
  - Alcohol problem [Unknown]
  - Blood glucose fluctuation [Unknown]
